FAERS Safety Report 6638464-5 (Version None)
Quarter: 2010Q1

REPORT INFORMATION
  Report Type: 
  Country: None (occurrence: None)
  Receive Date: 20100316
  Receipt Date: 20100316
  Transmission Date: 20100710
  Serious: Yes (Other)
  Sender: FDA-Public Use
  Company Number: None

PATIENT
  Age: 52 Year
  Sex: Female
  Weight: 77.1115 kg

DRUGS (1)
  1. RESTASIS [Suspect]
     Indication: BLEPHARITIS
     Dosage: 1 DROP TWICE A DAY OPHTHALMIC
     Route: 047
     Dates: start: 20100307, end: 20100309

REACTIONS (3)
  - FOREIGN BODY [None]
  - PRURITUS [None]
  - RASH ERYTHEMATOUS [None]
